FAERS Safety Report 18045301 (Version 1)
Quarter: 2020Q3

REPORT INFORMATION
  Report Type: Report from Study
  Country: GB (occurrence: GB)
  Receive Date: 20200720
  Receipt Date: 20200720
  Transmission Date: 20201103
  Serious: Yes (Death, Hospitalization)
  Sender: FDA-Public Use
  Company Number: GB-JNJFOC-20200713804

PATIENT
  Age: 70 Year
  Sex: Female
  Weight: 102.7 kg

DRUGS (3)
  1. STELARA [Suspect]
     Active Substance: USTEKINUMAB
     Route: 058
     Dates: start: 20180504, end: 20200422
  2. STELARA [Suspect]
     Active Substance: USTEKINUMAB
     Route: 058
     Dates: start: 20151019, end: 20170719
  3. STELARA [Suspect]
     Active Substance: USTEKINUMAB
     Indication: PSORIASIS
     Route: 058
     Dates: start: 20130729, end: 20141014

REACTIONS (3)
  - COVID-19 [Fatal]
  - Fracture [Unknown]
  - Fall [Unknown]

NARRATIVE: CASE EVENT DATE: 202004
